FAERS Safety Report 6067464-1 (Version None)
Quarter: 2009Q1

REPORT INFORMATION
  Report Type: 
  Country: None (occurrence: None)
  Receive Date: 20090205
  Receipt Date: 20090126
  Transmission Date: 20090719
  Serious: Yes (Hospitalization, Other)
  Sender: FDA-Public Use
  Company Number: IE-ELI_LILLY_AND_COMPANY-IE200811005995

PATIENT
  Sex: Male

DRUGS (2)
  1. CYMBALTA [Suspect]
     Indication: ANXIETY
     Dosage: 60 MG, UNKNOWN
     Route: 048
     Dates: start: 20081009, end: 20081014
  2. ZOPICLONE [Concomitant]
     Dosage: 7.5 MG, UNKNOWN
     Route: 048
     Dates: start: 20081009, end: 20081015

REACTIONS (7)
  - AKATHISIA [None]
  - ASTHENIA [None]
  - BLOOD CHOLESTEROL INCREASED [None]
  - EMOTIONAL DISTRESS [None]
  - HYPERTENSION [None]
  - HYPOTENSION [None]
  - SYNCOPE [None]
